FAERS Safety Report 17806916 (Version 1)
Quarter: 2020Q2

REPORT INFORMATION
  Report Type: Spontaneous
  Country: US (occurrence: US)
  Receive Date: 20200520
  Receipt Date: 20200520
  Transmission Date: 20200714
  Serious: Yes (Hospitalization)
  Sender: FDA-Public Use
  Company Number: None

PATIENT
  Age: 91 Year
  Sex: Male
  Weight: 74 kg

DRUGS (2)
  1. APIXABAN (APIXABAN) 2.5MG TAB) [Suspect]
     Active Substance: APIXABAN
     Indication: ATRIAL FIBRILLATION
     Dosage: ?          OTHER FREQUENCY:UNKNOWN;?
     Route: 048
     Dates: start: 20180814
  2. ASPIRIN (ASPIRIN 81MG TAB EC) [Suspect]
     Active Substance: ASPIRIN
     Route: 048
     Dates: start: 20200121, end: 20200122

REACTIONS (13)
  - Packed red blood cell transfusion [None]
  - Lower gastrointestinal haemorrhage [None]
  - Blood creatinine increased [None]
  - Blood pressure increased [None]
  - Therapy interrupted [None]
  - Urinary casts [None]
  - Diverticulum intestinal haemorrhagic [None]
  - Clostridium test positive [None]
  - Laboratory test interference [None]
  - Urinary sediment present [None]
  - White blood cells urine [None]
  - Red blood cells urine [None]
  - Blood urea abnormal [None]

NARRATIVE: CASE EVENT DATE: 20200122
